FAERS Safety Report 4718915-3 (Version None)
Quarter: 2005Q3

REPORT INFORMATION
  Report Type: 
  Country: None (occurrence: None)
  Receive Date: 20050720
  Receipt Date: 20050707
  Transmission Date: 20060218
  Serious: Yes (Hospitalization)
  Sender: FDA-Public Use
  Company Number: 2005058587

PATIENT
  Age: 45 Year
  Sex: Male
  Weight: 69 kg

DRUGS (16)
  1. IRINOTECAN HCL [Suspect]
     Indication: COLORECTAL CANCER
     Dosage: 80 + 100 + 120 + 140 MG (80 MG, INTERMITTENT) INTRAVENOUS - SEE IMAGE
     Route: 042
     Dates: end: 20050201
  2. IRINOTECAN HCL [Suspect]
     Indication: METASTASES TO LIVER
     Dosage: 80 + 100 + 120 + 140 MG (80 MG, INTERMITTENT) INTRAVENOUS - SEE IMAGE
     Route: 042
     Dates: end: 20050201
  3. IRINOTECAN HCL [Suspect]
     Indication: METASTASES TO LUNG
     Dosage: 80 + 100 + 120 + 140 MG (80 MG, INTERMITTENT) INTRAVENOUS - SEE IMAGE
     Route: 042
     Dates: end: 20050201
  4. IRINOTECAN HCL [Suspect]
     Indication: RECTAL CANCER
     Dosage: 80 + 100 + 120 + 140 MG (80 MG, INTERMITTENT) INTRAVENOUS - SEE IMAGE
     Route: 042
     Dates: end: 20050201
  5. IRINOTECAN HCL [Suspect]
     Indication: COLORECTAL CANCER
     Dosage: 80 + 100 + 120 + 140 MG (80 MG, INTERMITTENT) INTRAVENOUS - SEE IMAGE
     Route: 042
     Dates: start: 20041122
  6. IRINOTECAN HCL [Suspect]
     Indication: METASTASES TO LIVER
     Dosage: 80 + 100 + 120 + 140 MG (80 MG, INTERMITTENT) INTRAVENOUS - SEE IMAGE
     Route: 042
     Dates: start: 20041122
  7. IRINOTECAN HCL [Suspect]
     Indication: METASTASES TO LUNG
     Dosage: 80 + 100 + 120 + 140 MG (80 MG, INTERMITTENT) INTRAVENOUS - SEE IMAGE
     Route: 042
     Dates: start: 20041122
  8. IRINOTECAN HCL [Suspect]
     Indication: RECTAL CANCER
     Dosage: 80 + 100 + 120 + 140 MG (80 MG, INTERMITTENT) INTRAVENOUS - SEE IMAGE
     Route: 042
     Dates: start: 20041122
  9. FLUOROURACIL [Suspect]
     Indication: COLORECTAL CANCER
     Dosage: 900 MG (900 MG, INTERMITTENT), INTRAVENOUS
     Route: 042
     Dates: start: 20041122, end: 20050201
  10. FLUOROURACIL [Suspect]
     Indication: METASTASES TO LIVER
     Dosage: 900 MG (900 MG, INTERMITTENT), INTRAVENOUS
     Route: 042
     Dates: start: 20041122, end: 20050201
  11. FLUOROURACIL [Suspect]
     Indication: METASTASES TO LUNG
     Dosage: 900 MG (900 MG, INTERMITTENT), INTRAVENOUS
     Route: 042
     Dates: start: 20041122, end: 20050201
  12. FLUOROURACIL [Suspect]
     Indication: RECTAL CANCER
     Dosage: 900 MG (900 MG, INTERMITTENT), INTRAVENOUS
     Route: 042
     Dates: start: 20041122, end: 20050201
  13. CALCIUM LEVOFOLINATE (CALCIUM LEVOFOLINATE) [Suspect]
     Indication: COLORECTAL CANCER
     Dosage: 450 MG (450 MG, INTERMITTENT) - INTRAVENOUS
     Route: 042
     Dates: start: 20041122, end: 20050201
  14. CALCIUM LEVOFOLINATE (CALCIUM LEVOFOLINATE) [Suspect]
     Indication: METASTASES TO LIVER
     Dosage: 450 MG (450 MG, INTERMITTENT) - INTRAVENOUS
     Route: 042
     Dates: start: 20041122, end: 20050201
  15. CALCIUM LEVOFOLINATE (CALCIUM LEVOFOLINATE) [Suspect]
     Indication: METASTASES TO LUNG
     Dosage: 450 MG (450 MG, INTERMITTENT) - INTRAVENOUS
     Route: 042
     Dates: start: 20041122, end: 20050201
  16. CALCIUM LEVOFOLINATE (CALCIUM LEVOFOLINATE) [Suspect]
     Indication: RECTAL CANCER
     Dosage: 450 MG (450 MG, INTERMITTENT) - INTRAVENOUS
     Route: 042
     Dates: start: 20041122, end: 20050201

REACTIONS (6)
  - BACK PAIN [None]
  - CHILLS [None]
  - ILEAL PERFORATION [None]
  - INTESTINAL STENOSIS [None]
  - OMENTUM NEOPLASM [None]
  - PROCEDURAL COMPLICATION [None]
